FAERS Safety Report 17813089 (Version 1)
Quarter: 2020Q2

REPORT INFORMATION
  Report Type: Spontaneous
  Country: CN (occurrence: CN)
  Receive Date: 20200521
  Receipt Date: 20200521
  Transmission Date: 20200714
  Serious: Yes (Hospitalization, Other)
  Sender: FDA-Public Use
  Company Number: CN-BAXTER-2020BAX010500

PATIENT
  Age: 63 Year
  Sex: Female
  Weight: 60 kg

DRUGS (4)
  1. 0.9% SODIUM CHLORIDE INJECTION [Suspect]
     Active Substance: SODIUM CHLORIDE
     Indication: MEDICATION DILUTION
     Dosage: FIRST CYCLE,  0.9% SODIUM CHLORIDE + CYCLOPHOSPHAMIDE
     Route: 041
     Dates: start: 20200429, end: 20200429
  2. PIRARUBICIN HYDROCHLORIDE [Suspect]
     Active Substance: PIRARUBICIN HYDROCHLORIDE
     Indication: BREAST CANCER FEMALE
     Dosage: FIRST CYCLE, PIRARUBICIN HYDROCHLORIDE + 5% GLUCOSE
     Route: 041
     Dates: start: 20200429, end: 20200429
  3. ENDOXAN [Suspect]
     Active Substance: CYCLOPHOSPHAMIDE
     Indication: BREAST CANCER FEMALE
     Dosage: FIRST CYCLE, CYCLOPHOSPHAMIDE + 0.9% SODIUM CHLORIDE
     Route: 041
     Dates: start: 20200429, end: 20200429
  4. 5% GLUCOSE  INJECTION [Suspect]
     Active Substance: DEXTROSE
     Indication: MEDICATION DILUTION
     Dosage: FIRST CYCLE,  5% GLUCOSE + PIRARUBICIN HYDROCHLORIDE
     Route: 041
     Dates: start: 20200429, end: 20200429

REACTIONS (2)
  - Bone marrow failure [Recovered/Resolved]
  - Leukopenia [Recovered/Resolved]

NARRATIVE: CASE EVENT DATE: 20200507
